FAERS Safety Report 10193940 (Version 1)
Quarter: 2014Q2

REPORT INFORMATION
  Report Type: Spontaneous
  Country: US (occurrence: US)
  Receive Date: 20140524
  Receipt Date: 20140524
  Transmission Date: 20141212
  Serious: No
  Sender: FDA-Public Use
  Company Number: US-SANOFI-AVENTIS-2013SA050270

PATIENT
  Age: 71 Year
  Sex: Female

DRUGS (3)
  1. LANTUS SOLOSTAR [Suspect]
     Indication: TYPE 1 DIABETES MELLITUS
     Dosage: 30 AND 50 UNITS?FREQUENCY -AM AND PM
     Route: 048
  2. SOLOSTAR [Suspect]
  3. HUMALOG [Concomitant]

REACTIONS (1)
  - Memory impairment [Unknown]
